FAERS Safety Report 20704916 (Version 1)
Quarter: 2022Q2

REPORT INFORMATION
  Report Type: Spontaneous
  Country: US (occurrence: None)
  Receive Date: 20220413
  Receipt Date: 20220413
  Transmission Date: 20220721
  Serious: Yes (Hospitalization)
  Sender: FDA-Public Use
  Company Number: None

PATIENT
  Age: 77 Year
  Sex: Female
  Weight: 62.5 kg

DRUGS (2)
  1. GEMCITABINE HYDROCHLORIDE [Suspect]
     Active Substance: GEMCITABINE HYDROCHLORIDE
     Dates: end: 20220407
  2. PACLITAXEL [Suspect]
     Active Substance: PACLITAXEL
     Dates: end: 20220407

REACTIONS (13)
  - Constipation [None]
  - Abdominal pain lower [None]
  - Abdominal distension [None]
  - Abdominal distension [None]
  - Discomfort [None]
  - Hypophagia [None]
  - Nausea [None]
  - Diarrhoea [None]
  - Ascites [None]
  - Condition aggravated [None]
  - Metastases to peritoneum [None]
  - Metastases to liver [None]
  - Biliary dilatation [None]

NARRATIVE: CASE EVENT DATE: 20220409
